FAERS Safety Report 8621871-9 (Version None)
Quarter: 2012Q3

REPORT INFORMATION
  Report Type: 
  Country: None (occurrence: None)
  Receive Date: 20120822
  Receipt Date: 20120822
  Transmission Date: 20120928
  Serious: Yes (Other)
  Sender: FDA-Public Use
  Company Number: None

PATIENT
  Age: 26 Year
  Sex: Male
  Weight: 72.5755 kg

DRUGS (2)
  1. LARIAM [Suspect]
     Indication: MALARIA
     Dates: start: 20090111, end: 20090613
  2. LARIAM [Suspect]
     Indication: MALARIA
     Dates: start: 20050101, end: 20050601

REACTIONS (1)
  - COMPLETED SUICIDE [None]
